FAERS Safety Report 20728362 (Version 1)
Quarter: 2022Q2

REPORT INFORMATION
  Report Type: Spontaneous
  Country: JP (occurrence: JP)
  Receive Date: 20220420
  Receipt Date: 20220420
  Transmission Date: 20220721
  Serious: Yes (Other)
  Sender: FDA-Public Use
  Company Number: JP-SUN PHARMACEUTICAL INDUSTRIES LTD-2022RR-333053

PATIENT
  Age: 56 Year
  Sex: Male

DRUGS (4)
  1. BOSENTAN [Interacting]
     Active Substance: BOSENTAN
     Indication: Systemic scleroderma
     Dosage: 62.5 MILLIGRAM, BID
     Route: 065
  2. BOSENTAN [Interacting]
     Active Substance: BOSENTAN
     Dosage: 125 MILLIGRAM, BID
     Route: 065
  3. LANSOPRAZOLE [Suspect]
     Active Substance: LANSOPRAZOLE
     Indication: Gastrooesophageal reflux disease
     Dosage: 30 MILLIGRAM, DAILY
     Route: 065
  4. VONOPRAZAN [Interacting]
     Active Substance: VONOPRAZAN
     Indication: Gastrooesophageal reflux disease
     Dosage: UNK
     Route: 065

REACTIONS (2)
  - Condition aggravated [Unknown]
  - Drug interaction [Unknown]
